FAERS Safety Report 24540384 (Version 1)
Quarter: 2024Q4

REPORT INFORMATION
  Report Type: Spontaneous
  Country: FR (occurrence: FR)
  Receive Date: 20241023
  Receipt Date: 20241023
  Transmission Date: 20250115
  Serious: Yes (Disabling)
  Sender: SANDOZ
  Company Number: FR-NOVPHSZ-PHHY2019FR164061

PATIENT
  Age: 85 Year
  Sex: Female
  Weight: 53 kg

DRUGS (1)
  1. PANTOPRAZOLE SODIUM [Suspect]
     Active Substance: PANTOPRAZOLE SODIUM
     Indication: Prophylaxis against gastrointestinal ulcer
     Dosage: 40 MG, QD
     Route: 048
     Dates: end: 20190611

REACTIONS (6)
  - Tremor [Recovered/Resolved]
  - Balance disorder [Recovered/Resolved]
  - Hypomagnesaemia [Recovering/Resolving]
  - Confusional state [Recovered/Resolved]
  - Diarrhoea [Recovering/Resolving]
  - Hypocalcaemia [Recovered/Resolved]

NARRATIVE: CASE EVENT DATE: 20190101
